FAERS Safety Report 8576036-6 (Version None)
Quarter: 2012Q3

REPORT INFORMATION
  Report Type: 
  Country: None (occurrence: None)
  Receive Date: 20120725
  Receipt Date: 20120713
  Transmission Date: 20120928
  Serious: Yes (Hospitalization, Other)
  Sender: FDA-Public Use
  Company Number: 2012-3321

PATIENT
  Age: 38 Year
  Sex: Female

DRUGS (2)
  1. LEVOXYL [Concomitant]
  2. SOMATULINE DEPOT [Suspect]
     Indication: ACROMEGALY
     Dosage: 90 MG (90 MG, 1 IN 28 D),SUBCUTANEOUS
     Route: 058
     Dates: start: 20100701, end: 20111211

REACTIONS (11)
  - ABDOMINAL PAIN [None]
  - BLOOD POTASSIUM DECREASED [None]
  - WHITE BLOOD CELL COUNT INCREASED [None]
  - AMENORRHOEA [None]
  - INSULIN-LIKE GROWTH FACTOR INCREASED [None]
  - FALL [None]
  - BLOOD IRON DECREASED [None]
  - UTERINE CYST [None]
  - CHOLELITHIASIS [None]
  - UTERINE LEIOMYOMA [None]
  - HEPATIC ENZYME INCREASED [None]
